FAERS Safety Report 14117683 (Version 1)
Quarter: 2017Q4

REPORT INFORMATION
  Report Type: Spontaneous
  Country: US (occurrence: US)
  Receive Date: 20171023
  Receipt Date: 20171023
  Transmission Date: 20180321
  Serious: No
  Sender: FDA-Public Use
  Company Number: US-ABBVIE-17P-163-1958168-00

PATIENT
  Sex: Female

DRUGS (1)
  1. LUPRON DEPOT [Suspect]
     Active Substance: LEUPROLIDE ACETATE
     Indication: HYSTERECTOMY
     Route: 030
     Dates: start: 201501, end: 201506

REACTIONS (7)
  - Hot flush [Unknown]
  - Night sweats [Unknown]
  - Insomnia [Unknown]
  - Libido increased [Recovered/Resolved]
  - Weight decreased [Recovered/Resolved]
  - Therapeutic response unexpected [Recovered/Resolved]
  - Energy increased [Recovered/Resolved]

NARRATIVE: CASE EVENT DATE: 2015
